FAERS Safety Report 15270838 (Version 1)
Quarter: 2018Q3

REPORT INFORMATION
  Report Type: Spontaneous
  Country: US (occurrence: US)
  Receive Date: 20180813
  Receipt Date: 20180813
  Transmission Date: 20181010
  Serious: No
  Sender: FDA-Public Use
  Company Number: US-SA-2018SA220406

PATIENT
  Sex: Female

DRUGS (2)
  1. LANTUS [Suspect]
     Active Substance: INSULIN GLARGINE
     Dosage: UNKNOWN
  2. NOVOLOG [Suspect]
     Active Substance: INSULIN ASPART
     Dosage: UNKNOWN

REACTIONS (1)
  - Blood glucose increased [Unknown]
